FAERS Safety Report 5308557-3 (Version None)
Quarter: 2007Q2

REPORT INFORMATION
  Report Type: 
  Country: None (occurrence: None)
  Receive Date: 20070423
  Receipt Date: 20070423
  Transmission Date: 20071010
  Serious: Yes (Hospitalization)
  Sender: FDA-Public Use
  Company Number: None

PATIENT
  Age: 66 Year
  Sex: Male
  Weight: 143.8 kg

DRUGS (1)
  1. MAGNESIUM OXIDE [Suspect]
     Indication: MINERAL SUPPLEMENTATION
     Dosage: 2 TABS DAILY PO
     Route: 048

REACTIONS (2)
  - HYPOKALAEMIA [None]
  - HYPOMAGNESAEMIA [None]
